FAERS Safety Report 8908631 (Version 1)
Quarter: 2012Q4

REPORT INFORMATION
  Report Type: Report from Study
  Country: JP (occurrence: JP)
  Receive Date: 20121114
  Receipt Date: 20121114
  Transmission Date: 20130627
  Serious: Yes (Hospitalization)
  Sender: FDA-Public Use
  Company Number: JP-VERTEX PHARMACEUTICAL INC.-AE-2012-009159

PATIENT
  Age: 65 Year
  Sex: Male

DRUGS (18)
  1. VX-950 (TELAPREVIR) [Suspect]
     Indication: CHRONIC HEPATITIS C
     Dosage: 2250 mg, qd
     Route: 048
     Dates: start: 20120301, end: 20120306
  2. VX-950 (TELAPREVIR) [Suspect]
     Dosage: 1500 mg, qd
     Route: 048
     Dates: start: 20120307, end: 20120410
  3. VX-950 (TELAPREVIR) [Suspect]
     Dosage: 750 mg, qd
     Route: 048
     Dates: start: 20120411, end: 20120418
  4. RIBAVIRIN [Suspect]
     Indication: CHRONIC HEPATITIS C
     Dosage: 800 mg, qd
     Route: 048
     Dates: start: 20120301, end: 20120305
  5. RIBAVIRIN [Suspect]
     Dosage: 400 mg, qd
     Route: 048
     Dates: start: 20120306
  6. PEGINTERFERON ALFA-2B [Suspect]
     Indication: CHRONIC HEPATITIS C
     Dosage: 1.5 ?g/kg, qw
     Route: 058
     Dates: start: 20120301, end: 20120328
  7. PEGINTERFERON ALFA-2B [Suspect]
     Dosage: 50 ?g, qw
     Route: 058
     Dates: start: 20120404
  8. MUCOSTA [Concomitant]
     Dosage: 300 mg, qd
     Route: 048
  9. MUCOSTA [Concomitant]
     Dosage: 100 mg, qd
     Route: 048
  10. SM [Concomitant]
     Dosage: 1.5 g, qd
     Route: 048
  11. BIOFERMIN                          /00275501/ [Concomitant]
     Dosage: 1.5 g, qd
     Route: 048
     Dates: end: 20120417
  12. OMEPRAL /00661201/ [Concomitant]
     Dosage: 20 mg, qd
     Route: 048
     Dates: start: 20120304
  13. GASMOTIN [Concomitant]
     Dosage: 15 mg, qd
     Route: 048
     Dates: start: 20120305, end: 20120307
  14. FLOMOX [Concomitant]
     Dosage: 300 mg, qd
     Route: 048
     Dates: start: 20120307, end: 20120309
  15. PREDNISOLONE [Concomitant]
     Dosage: 30 mg, qd
     Route: 048
     Dates: start: 20120418, end: 20120420
  16. PARIET [Concomitant]
     Dosage: 10 mg, qd
     Route: 048
     Dates: start: 20120418
  17. ALESION [Concomitant]
     Route: 048
  18. PRIMPERAN [Concomitant]
     Dosage: 5 mg, prn
     Route: 048

REACTIONS (1)
  - Toxic skin eruption [Recovered/Resolved]
